FAERS Safety Report 16039515 (Version 1)
Quarter: 2019Q2

REPORT INFORMATION
  Report Type: Spontaneous
  Country: US (occurrence: US)
  Receive Date: 20190305
  Receipt Date: 20190305
  Transmission Date: 20190711
  Serious: Yes (Other)
  Sender: FDA-Public Use
  Company Number: None

PATIENT
  Sex: Female
  Weight: 65.25 kg

DRUGS (3)
  1. G.E. CLONAZEPAM [Suspect]
     Active Substance: CLONAZEPAM
     Indication: INSOMNIA
     Dosage: ?          QUANTITY:2 TABLET(S);?
     Route: 048
     Dates: start: 20190222
  2. GABAPENTIN. [Concomitant]
     Active Substance: GABAPENTIN
  3. G.E. CLONAZEPAM [Suspect]
     Active Substance: CLONAZEPAM
     Indication: ANXIETY
     Dosage: ?          QUANTITY:2 TABLET(S);?
     Route: 048
     Dates: start: 20190222

REACTIONS (6)
  - Alopecia [None]
  - Rash [None]
  - Product quality issue [None]
  - Dysgeusia [None]
  - Urinary incontinence [None]
  - Drug withdrawal syndrome [None]
